FAERS Safety Report 4867500-1 (Version None)
Quarter: 2005Q4

REPORT INFORMATION
  Report Type: 
  Country: None (occurrence: None)
  Receive Date: 20051227
  Receipt Date: 20051227
  Transmission Date: 20060501
  Serious: No
  Sender: FDA-Public Use
  Company Number: None

PATIENT
  Sex: Male
  Weight: 113.3993 kg

DRUGS (2)
  1. NARDIL [Suspect]
     Indication: DEPRESSION
     Dosage: 15MG.   6 X PER DAY  PO
     Route: 048
     Dates: start: 19890723, end: 20051223
  2. NARDIL [Suspect]
     Indication: PANIC ATTACK
     Dosage: 15MG.   6 X PER DAY  PO
     Route: 048
     Dates: start: 19890723, end: 20051223

REACTIONS (5)
  - ABNORMAL DREAMS [None]
  - DEPRESSION [None]
  - FATIGUE [None]
  - PANIC ATTACK [None]
  - PHARMACEUTICAL PRODUCT COMPLAINT [None]
